FAERS Safety Report 9688486 (Version 1)
Quarter: 2013Q4

REPORT INFORMATION
  Report Type: Spontaneous
  Country: US (occurrence: US)
  Receive Date: 20131114
  Receipt Date: 20131114
  Transmission Date: 20140711
  Serious: No
  Sender: FDA-Public Use
  Company Number: US-009507513-1311USA003059

PATIENT
  Sex: Female

DRUGS (3)
  1. SAPHRIS [Suspect]
     Indication: SCHIZOPHRENIA
     Dosage: UNK
     Route: 060
     Dates: end: 2013
  2. PAXIL [Concomitant]
  3. GEODON [Concomitant]

REACTIONS (3)
  - Dyspnoea [Unknown]
  - Pallor [Unknown]
  - Dizziness [Unknown]
